FAERS Safety Report 14045728 (Version 2)
Quarter: 2017Q4

REPORT INFORMATION
  Report Type: Spontaneous
  Country: US (occurrence: US)
  Receive Date: 20171005
  Receipt Date: 20171122
  Transmission Date: 20180321
  Serious: No
  Sender: FDA-Public Use
  Company Number: US-TEVA-810707USA

PATIENT
  Age: 61 Year
  Sex: Female

DRUGS (5)
  1. OTFC [Suspect]
     Active Substance: FENTANYL CITRATE
     Indication: NERVE INJURY
     Dosage: 1600 MICROGRAM DAILY;
     Route: 065
     Dates: start: 2006
  2. OTFC [Suspect]
     Active Substance: FENTANYL CITRATE
     Route: 065
     Dates: end: 20171022
  3. OTFC [Suspect]
     Active Substance: FENTANYL CITRATE
     Indication: PAIN
     Dosage: 6400 MICROGRAM DAILY;
     Route: 065
     Dates: start: 2001
  4. OTFC [Suspect]
     Active Substance: FENTANYL CITRATE
     Dosage: 3200 MICROGRAM DAILY;
     Route: 065
  5. MORPHINE [Concomitant]
     Active Substance: MORPHINE
     Route: 065

REACTIONS (9)
  - Abdominal pain upper [Unknown]
  - Product use in unapproved indication [Unknown]
  - Withdrawal syndrome [Not Recovered/Not Resolved]
  - Drug hypersensitivity [Unknown]
  - Drug intolerance [Unknown]
  - Adverse event [Unknown]
  - Diarrhoea [Unknown]
  - Ill-defined disorder [Unknown]
  - Drug titration error [Unknown]

NARRATIVE: CASE EVENT DATE: 201711
